FAERS Safety Report 13698932 (Version 1)
Quarter: 2017Q2

REPORT INFORMATION
  Report Type: Spontaneous
  Country: CN (occurrence: CN)
  Receive Date: 20170628
  Receipt Date: 20170628
  Transmission Date: 20170830
  Serious: Yes (Hospitalization, Other)
  Sender: FDA-Public Use
  Company Number: CN-JNJFOC-20170605087

PATIENT
  Age: 54 Year
  Sex: Female

DRUGS (7)
  1. REMICADE [Suspect]
     Active Substance: INFLIXIMAB
     Indication: CROHN^S DISEASE
     Route: 042
     Dates: start: 20090127
  2. REMICADE [Suspect]
     Active Substance: INFLIXIMAB
     Indication: CROHN^S DISEASE
     Route: 042
     Dates: start: 20090209
  3. REMICADE [Suspect]
     Active Substance: INFLIXIMAB
     Indication: CROHN^S DISEASE
     Route: 042
     Dates: start: 20160513
  4. REMICADE [Suspect]
     Active Substance: INFLIXIMAB
     Indication: CROHN^S DISEASE
     Route: 042
     Dates: start: 20160627
  5. REMICADE [Suspect]
     Active Substance: INFLIXIMAB
     Indication: CROHN^S DISEASE
     Route: 042
     Dates: start: 20090309
  6. THALIDOMIDE [Suspect]
     Active Substance: THALIDOMIDE
     Indication: PRODUCT USED FOR UNKNOWN INDICATION
     Route: 048
  7. REMICADE [Suspect]
     Active Substance: INFLIXIMAB
     Indication: CROHN^S DISEASE
     Dosage: 1ST DOSE
     Route: 042
     Dates: start: 20160429

REACTIONS (19)
  - Anastomotic stenosis [Unknown]
  - Abdominal adhesions [Unknown]
  - Cough [Unknown]
  - Hypersensitivity [Recovered/Resolved]
  - Biliary dilatation [Unknown]
  - Hypoaesthesia [Unknown]
  - Abdominal abscess [Unknown]
  - Renal cyst [Unknown]
  - Oedema peripheral [Unknown]
  - Post procedural infection [Unknown]
  - Chronic gastritis [Unknown]
  - Intervertebral disc protrusion [Unknown]
  - Rhinorrhoea [Unknown]
  - Infusion related reaction [Recovered/Resolved]
  - Spinal column stenosis [Unknown]
  - Dyschezia [Unknown]
  - Intestinal fistula [Unknown]
  - Peritonitis [Unknown]
  - Crohn^s disease [Unknown]

NARRATIVE: CASE EVENT DATE: 20131104
